FAERS Safety Report 8173104-8 (Version None)
Quarter: 2012Q1

REPORT INFORMATION
  Report Type: 
  Country: None (occurrence: None)
  Receive Date: 20120104
  Receipt Date: 20111104
  Transmission Date: 20120608
  Serious: No
  Sender: FDA-Public Use
  Company Number: 2011HGS-002747

PATIENT
  Age: 35 Year
  Sex: Female
  Weight: 64.8644 kg

DRUGS (6)
  1. METHOTREXATE [Concomitant]
  2. PREDNISONE [Concomitant]
  3. TRAMADOL HCL [Concomitant]
  4. BENLYSTA [Suspect]
     Indication: SYSTEMIC LUPUS ERYTHEMATOSUS
     Dosage: 1 IN 28 D, INTRAVENOUS DRIP
     Route: 041
  5. FOLIC ACID [Concomitant]
  6. AMBIEN [Concomitant]

REACTIONS (3)
  - SINUSITIS [None]
  - BACK PAIN [None]
  - POLLAKIURIA [None]
